FAERS Safety Report 25354706 (Version 1)
Quarter: 2025Q2

REPORT INFORMATION
  Report Type: Spontaneous
  Country: US (occurrence: US)
  Receive Date: 20250524
  Receipt Date: 20250524
  Transmission Date: 20250717
  Serious: No
  Sender: STRIDES
  Company Number: US-STRIDES ARCOLAB LIMITED-2024SP008050

PATIENT
  Age: 48 Year
  Sex: Male

DRUGS (12)
  1. MINOCYCLINE [Suspect]
     Active Substance: MINOCYCLINE HYDROCHLORIDE
     Indication: Nocardiosis
     Route: 065
  2. MINOCYCLINE [Suspect]
     Active Substance: MINOCYCLINE HYDROCHLORIDE
     Indication: Pyomyositis
  3. MEROPENEM [Suspect]
     Active Substance: MEROPENEM
     Indication: Nocardiosis
     Route: 065
  4. MEROPENEM [Suspect]
     Active Substance: MEROPENEM
     Indication: Pyomyositis
  5. IMIPENEM [Concomitant]
     Active Substance: IMIPENEM
     Indication: Nocardiosis
     Route: 065
  6. IMIPENEM [Concomitant]
     Active Substance: IMIPENEM
     Indication: Pyomyositis
  7. VANCOMYCIN [Concomitant]
     Active Substance: VANCOMYCIN
     Indication: Nocardiosis
     Route: 042
  8. VANCOMYCIN [Concomitant]
     Active Substance: VANCOMYCIN
     Indication: Pyomyositis
  9. PIPERACILLIN SODIUM\TAZOBACTAM SODIUM [Concomitant]
     Active Substance: PIPERACILLIN SODIUM\TAZOBACTAM SODIUM
     Indication: Nocardiosis
     Route: 065
  10. PIPERACILLIN SODIUM\TAZOBACTAM SODIUM [Concomitant]
     Active Substance: PIPERACILLIN SODIUM\TAZOBACTAM SODIUM
     Indication: Pyomyositis
  11. LINEZOLID [Concomitant]
     Active Substance: LINEZOLID
     Indication: Nocardiosis
     Route: 065
  12. LINEZOLID [Concomitant]
     Active Substance: LINEZOLID
     Indication: Pyomyositis

REACTIONS (2)
  - Drug intolerance [Unknown]
  - Off label use [Unknown]
